FAERS Safety Report 11774247 (Version 1)
Quarter: 2015Q4

REPORT INFORMATION
  Report Type: Spontaneous
  Country: US (occurrence: US)
  Receive Date: 20151124
  Receipt Date: 20151124
  Transmission Date: 20160304
  Serious: No
  Sender: FDA-Public Use
  Company Number: US-BAYER-2015-472111

PATIENT
  Age: 52 Year
  Sex: Male
  Weight: 84.81 kg

DRUGS (3)
  1. ALEVE [Suspect]
     Active Substance: NAPROXEN SODIUM
     Indication: ARTHRITIS
     Dosage: 2 DF, TID
     Route: 048
     Dates: start: 201509
  2. ALEVE PM [Suspect]
     Active Substance: DIPHENHYDRAMINE HYDROCHLORIDE\NAPROXEN SODIUM
     Indication: ARTHRITIS
     Dosage: 2 DF, TID
     Route: 048
     Dates: start: 201509
  3. ALEVE [Suspect]
     Active Substance: NAPROXEN SODIUM
     Indication: ARTHRITIS
     Dosage: 2 DF, TID
     Route: 048
     Dates: start: 201509

REACTIONS (1)
  - Product use issue [None]

NARRATIVE: CASE EVENT DATE: 201509
